FAERS Safety Report 17356053 (Version 1)
Quarter: 2020Q1

REPORT INFORMATION
  Report Type: Report from Study
  Country: DE (occurrence: DE)
  Receive Date: 20200131
  Receipt Date: 20200131
  Transmission Date: 20200409
  Serious: Yes (Death, Hospitalization, Other)
  Sender: FDA-Public Use
  Company Number: DE-AMGEN-DEUCT2020013545

PATIENT
  Age: 83 Year
  Sex: Female
  Weight: 67 kg

DRUGS (4)
  1. ISATUXIMAB [Suspect]
     Active Substance: ISATUXIMAB
     Indication: PLASMA CELL MYELOMA
     Dosage: 670 MILLIGRAM, PER CHEMO REGIM
     Route: 041
     Dates: start: 20190705, end: 20191230
  2. DEXAMETHASONE. [Suspect]
     Active Substance: DEXAMETHASONE
     Indication: PLASMA CELL MYELOMA
     Dosage: 20 MILLIGRAM, PER CHEMO REGIM
     Route: 042
     Dates: start: 20190705, end: 20200107
  3. LENALIDOMIDE [Suspect]
     Active Substance: LENALIDOMIDE
     Indication: PLASMA CELL MYELOMA
     Dosage: 15 MILLIGRAM, PER CHEMO REGIM
     Route: 048
     Dates: start: 20190705, end: 20200107
  4. CARFILZOMIB [Suspect]
     Active Substance: CARFILZOMIB
     Indication: PLASMA CELL MYELOMA
     Dosage: 36 MILLIGRAM/SQ. METER, PER CHEMO REGIM
     Route: 041
     Dates: start: 20190705, end: 20200107

REACTIONS (2)
  - Cardiac failure [Fatal]
  - Influenza [Fatal]

NARRATIVE: CASE EVENT DATE: 20200108
